FAERS Safety Report 7660008 (Version 7)
Quarter: 2013Q4

REPORT INFORMATION
  Report Type: Spontaneous
  Country: US (occurrence: US)
  Receive Date: 20101108
  Receipt Date: 20131024
  Transmission Date: 20140711
  Serious: Yes (Hospitalization, Other)
  Sender: FDA-Public Use
  Company Number: US-BAYER-201025618NA

PATIENT
  Age: 27 Year
  Sex: Female
  Weight: 79 kg

DRUGS (59)
  1. YASMIN [Suspect]
     Dosage: UNK
     Route: 048
     Dates: start: 200104, end: 200401
  2. YASMIN [Suspect]
     Dosage: UNK
     Route: 048
     Dates: start: 200501, end: 200601
  3. NUVARING [Concomitant]
     Dosage: UNK
     Dates: start: 200605, end: 200611
  4. ALPRAZOLAM [Concomitant]
     Indication: ANXIETY
     Dosage: 0.5 MG, UNK
     Dates: start: 2006
  5. ATENOLOL [Concomitant]
     Dosage: 25 MG, UNK
     Dates: start: 2007
  6. CARTIA XT [Concomitant]
     Dosage: 120 MG, UNK
     Dates: start: 2006
  7. CEFUROXIME AXETIL [Concomitant]
     Dosage: 250 MG, UNK
     Dates: start: 2005
  8. CEPHALEXIN [Concomitant]
     Dosage: 500 MG, UNK
     Dates: start: 2006
  9. CLONIDINE [Concomitant]
     Dosage: 0.2 MG, UNK
     Dates: start: 2006
  10. CYMBALTA [Concomitant]
     Dosage: 60 MG, UNK
     Dates: start: 2006
  11. DICLOXACILLIN [Concomitant]
     Dosage: 500 MG, UNK
     Dates: start: 2007
  12. DIOVAN [Concomitant]
     Indication: BLOOD PRESSURE ABNORMAL
     Dosage: 320 MG, UNK
     Dates: start: 2006
  13. DIURETICS [Concomitant]
  14. DOXAZOSIN MESYLATE [Concomitant]
     Dosage: 2 MG, UNK
     Dates: start: 2005
  15. EPOGEN [Concomitant]
     Indication: RED BLOOD CELL ABNORMALITY
     Dosage: UNK
     Dates: start: 2006
  16. FLUCONAZOLE [Concomitant]
     Dosage: 100 MG, UNK
     Dates: start: 2006
  17. HECTOROL [Concomitant]
     Indication: PARATHYROID DISORDER
     Dosage: 2.5 MG, UNK
     Dates: start: 2007
  18. HYDROMORPHONE [Concomitant]
     Dosage: 2 MG, UNK
     Dates: start: 2007
  19. IMMUNOGLOBULIN [Concomitant]
     Indication: IMMUNE SYSTEM DISORDER
     Route: 042
  20. KEPPRA [Concomitant]
     Dosage: 500 MG, UNK
     Dates: start: 2006
  21. LACTULOSE [Concomitant]
     Dosage: 10 UNK, UNK
     Dates: start: 2006
  22. LASIX [Concomitant]
     Dosage: 40 MG, UNK
     Dates: start: 2006
  23. LEVAQUIN [Concomitant]
     Dosage: 250 MG, UNK
     Dates: start: 2006
  24. LEXAPRO [Concomitant]
     Indication: DEPRESSION
     Dosage: 10 MG, UNK
     Dates: start: 2006
  25. LUPRON [Concomitant]
     Dosage: UNK
     Dates: start: 200611
  26. NEPHROVITE [VIT C,VIT H,B5,B12,B9,B3,B6,B2,B1 HCL] [Concomitant]
     Indication: RENAL FAILURE
     Dosage: UNK
     Dates: start: 2006
  27. NITROFURANTOIN [Concomitant]
     Dosage: 100 MG, UNK
     Dates: start: 2007
  28. NITROGLYCERIN [Concomitant]
     Dosage: 0.4 MG/HR, UNK
     Dates: start: 2006
  29. NSAID^S [Concomitant]
  30. PERCOCET [Concomitant]
     Indication: PAIN
     Dosage: UNK
     Dates: start: 2006
  31. PHENAZOPYRIDINE [Concomitant]
     Dosage: 100 MG, UNK
     Dates: start: 2007
  32. POTASSIUM [POTASSIUM] [Concomitant]
  33. PROTONIX [Concomitant]
     Indication: GASTROOESOPHAGEAL REFLUX DISEASE
     Dosage: 40 MG, UNK
     Dates: start: 2006
  34. RENAGEL [SEVELAMER] [Concomitant]
     Indication: BLOOD PHOSPHORUS INCREASED
     Dosage: 800 MG, UNK
     Dates: start: 2006
  35. REQUIP [Concomitant]
     Indication: RESTLESS LEGS SYNDROME
     Dosage: 0.25 MG, UNK
     Dates: start: 2006
  36. SENSIPAR [Concomitant]
     Indication: PARATHYROID DISORDER
     Dosage: 30 MG, UNK
     Dates: start: 2006
  37. SEPTRA DS [Concomitant]
     Dosage: UNK
     Dates: start: 2006
  38. SYNTHROID [Concomitant]
     Indication: THYROID DISORDER
     Dosage: 75 UNK, UNK
  39. TRAMADOL HYDROCHLORIDE [Concomitant]
     Dosage: 50 MG, UNK
     Dates: start: 2006
  40. UROCIT-K [Concomitant]
     Dosage: 10 MEQ, UNK
     Dates: start: 2006
  41. VENTOLIN HFA [Concomitant]
     Dosage: 90 UNK, UNK
     Dates: start: 2007
  42. VIGAMOX [Concomitant]
     Dosage: 0.5 %, UNK
     Dates: start: 2006
  43. PROGRAF [Concomitant]
  44. MYFORTIC [Concomitant]
  45. ZOLOFT [Concomitant]
  46. ASPIRIN [Concomitant]
  47. DILTIAZEM [Concomitant]
  48. PHENTERMINE [Concomitant]
     Indication: WEIGHT DECREASED
     Dosage: LATE DEC-2005 FOR APPROXIMATELY 3 WEEKS
  49. TOPAMAX [Concomitant]
     Indication: WEIGHT DECREASED
     Dosage: LATE DEC-2005 FOR APPROXIMATELY 3 WEEKS.
  50. AMOXICILLIN [Concomitant]
     Dosage: 500 MG, UNK
  51. TOPROL [Concomitant]
  52. SOLU-MEDROL [Concomitant]
  53. NORVASC [Concomitant]
  54. VINCRISTINE [Concomitant]
  55. ALBUMIN [Concomitant]
  56. XANAX [Concomitant]
  57. ORABASE [Concomitant]
     Indication: MOUTH ULCERATION
  58. MORPHINE [Concomitant]
  59. LABETALOL [Concomitant]

REACTIONS (11)
  - Haemolytic uraemic syndrome [Recovered/Resolved]
  - Renal failure [Recovered/Resolved]
  - Grand mal convulsion [Recovered/Resolved]
  - Grand mal convulsion [Recovered/Resolved]
  - Hypertension [Recovered/Resolved]
  - Cerebrovascular accident [None]
  - Cerebrovascular accident [None]
  - Cardiac failure congestive [None]
  - Cholelithiasis [Recovered/Resolved]
  - Nephrolithiasis [None]
  - Cholecystitis chronic [None]
